FAERS Safety Report 8268799-4 (Version None)
Quarter: 2012Q2

REPORT INFORMATION
  Report Type: 
  Country: None (occurrence: None)
  Receive Date: 20120409
  Receipt Date: 20120409
  Transmission Date: 20120825
  Serious: Yes (Other)
  Sender: FDA-Public Use
  Company Number: None

PATIENT
  Sex: Male

DRUGS (3)
  1. LEVOFLOXACIN [Suspect]
     Dosage: ONCE A DAY
     Route: 048
     Dates: start: 20120404, end: 20120404
  2. TOPROL-XL [Concomitant]
     Route: 048
  3. COUMADIN [Concomitant]
     Route: 048

REACTIONS (1)
  - PRURITUS [None]
